APPROVED DRUG PRODUCT: VYONDYS 53
Active Ingredient: GOLODIRSEN
Strength: 100MG/2ML (50MG/ML)
Dosage Form/Route: SOLUTION;INTRAVENOUS
Application: N211970 | Product #001
Applicant: SAREPTA THERAPEUTICS INC
Approved: Dec 12, 2019 | RLD: Yes | RS: Yes | Type: RX

PATENTS:
Patent RE47691 | Expires: Jun 28, 2028

EXCLUSIVITY:
Code: ODE-280 | Date: Dec 12, 2026